FAERS Safety Report 12631823 (Version 3)
Quarter: 2016Q3

REPORT INFORMATION
  Report Type: Spontaneous
  Country: US (occurrence: US)
  Receive Date: 20160808
  Receipt Date: 20160808
  Transmission Date: 20161109
  Serious: No
  Sender: FDA-Public Use
  Company Number: US-BEH-2016061170

PATIENT
  Sex: Female
  Weight: 79 kg

DRUGS (13)
  1. ZPREXA [Concomitant]
  2. NASONEX [Concomitant]
     Active Substance: MOMETASONE FUROATE
  3. SINGULAIR [Concomitant]
     Active Substance: MONTELUKAST SODIUM
  4. LYRICA [Concomitant]
     Active Substance: PREGABALIN
  5. LEXAPRO [Concomitant]
     Active Substance: ESCITALOPRAM OXALATE
  6. TUMS [Concomitant]
     Active Substance: CALCIUM CARBONATE
  7. ALBUTEROL. [Concomitant]
     Active Substance: ALBUTEROL
  8. PRILOSEC [Concomitant]
     Active Substance: OMEPRAZOLE MAGNESIUM
  9. TOPAMAX [Concomitant]
     Active Substance: TOPIRAMATE
  10. HIZENTRA [Suspect]
     Active Substance: HUMAN IMMUNOGLOBULIN G
     Indication: IMMUNODEFICIENCY COMMON VARIABLE
     Route: 058
     Dates: start: 20120515
  11. NEURONTIN [Concomitant]
     Active Substance: GABAPENTIN
  12. ZANTAC [Concomitant]
     Active Substance: RANITIDINE HYDROCHLORIDE
  13. AUGMENTIN [Concomitant]
     Active Substance: AMOXICILLIN\CLAVULANATE POTASSIUM

REACTIONS (1)
  - Viral infection [Unknown]
